FAERS Safety Report 10154169 (Version 1)
Quarter: 2014Q2

REPORT INFORMATION
  Report Type: Spontaneous
  Country: US (occurrence: US)
  Receive Date: 20140506
  Receipt Date: 20140506
  Transmission Date: 20141212
  Serious: No
  Sender: FDA-Public Use
  Company Number: US-JNJFOC-20140500112

PATIENT
  Age: 30 Year
  Sex: Male
  Weight: 88.45 kg

DRUGS (5)
  1. FENTANYL TRANSDERAM SYSTEM [Suspect]
     Indication: ARTHRALGIA
     Route: 062
     Dates: start: 20140328
  2. FENTANYL TRANSDERAM SYSTEM [Suspect]
     Indication: BACK PAIN
     Route: 062
     Dates: start: 20140328
  3. DILAUDID [Concomitant]
     Indication: PAIN
     Dosage: AS NECESSARY
     Route: 048
     Dates: start: 2013
  4. IBUPROFEN [Concomitant]
     Indication: INFLAMMATION
     Dosage: 600 MG TABLET, 800 MG TABLET 1-2 TIMES PER DAY
     Route: 048
     Dates: start: 2011
  5. IBUPROFEN [Concomitant]
     Indication: PAIN
     Dosage: 600 MG TABLET, 800 MG TABLET 1-2 TIMES PER DAY
     Route: 048
     Dates: start: 2011

REACTIONS (3)
  - Wrong technique in drug usage process [Recovered/Resolved]
  - Product quality issue [Unknown]
  - Device adhesion issue [None]
